FAERS Safety Report 21957260 (Version 4)
Quarter: 2025Q3

REPORT INFORMATION
  Report Type: Spontaneous
  Country: US (occurrence: US)
  Receive Date: 20230206
  Receipt Date: 20250816
  Transmission Date: 20251020
  Serious: No
  Sender: SANOFI AVENTIS
  Company Number: US-SA-SAC20230202000244

PATIENT
  Age: 35 Year
  Sex: Female
  Weight: 73.923 kg

DRUGS (5)
  1. FABRAZYME [Suspect]
     Active Substance: AGALSIDASE BETA
     Indication: Fabry^s disease
     Dosage: 70 MG; QOW
     Route: 041
     Dates: start: 202205
  2. FABRAZYME [Suspect]
     Active Substance: AGALSIDASE BETA
     Dosage: 70 MG; QOW
     Route: 041
     Dates: start: 20220516
  3. FABRAZYME [Suspect]
     Active Substance: AGALSIDASE BETA
     Dosage: 72.5 MG, QOW
     Route: 042
  4. FABRAZYME [Suspect]
     Active Substance: AGALSIDASE BETA
     Dosage: 72.5 MG, QOW
     Route: 042
     Dates: start: 202205
  5. FABRAZYME [Suspect]
     Active Substance: AGALSIDASE BETA
     Dosage: 75 MG (70 + 5 MG), QOW
     Route: 042

REACTIONS (2)
  - Weight increased [Unknown]
  - Weight decreased [Unknown]

NARRATIVE: CASE EVENT DATE: 20230201
